FAERS Safety Report 5835308-6 (Version None)
Quarter: 2008Q3

REPORT INFORMATION
  Report Type: 
  Country: None (occurrence: None)
  Receive Date: 20080806
  Receipt Date: 20080804
  Transmission Date: 20090109
  Serious: Yes (Other)
  Sender: FDA-Public Use
  Company Number: NO-BRISTOL-MYERS SQUIBB COMPANY-14210678

PATIENT
  Age: 39 Year
  Sex: Female

DRUGS (5)
  1. ORENCIA [Suspect]
     Indication: BILIARY CIRRHOSIS PRIMARY
     Route: 042
     Dates: start: 20080201
  2. PREDNISOLONE [Suspect]
  3. MYFORTIC [Concomitant]
     Dosage: MYFORTIC 360 MG X 2.
  4. URSO FALK [Concomitant]
     Dosage: URSOFALK 200 MG X 2.
  5. CARVEDILOL [Concomitant]
     Dosage: KREDEX 6.2 MG X 2.

REACTIONS (2)
  - CATARACT [None]
  - VISION BLURRED [None]
